FAERS Safety Report 12397920 (Version 1)
Quarter: 2016Q2

REPORT INFORMATION
  Report Type: Spontaneous
  Country: US (occurrence: None)
  Receive Date: 20160523
  Receipt Date: 20160523
  Transmission Date: 20160815
  Serious: Yes (Hospitalization)
  Sender: FDA-Public Use
  Company Number: None

PATIENT
  Age: 42 Year
  Sex: Female

DRUGS (8)
  1. LANSOPRAZOLE. [Concomitant]
     Active Substance: LANSOPRAZOLE
  2. MYCOPHENOLATE [Concomitant]
     Active Substance: MYCOPHENOLIC ACID
  3. VORICONAZOLE. [Suspect]
     Active Substance: VORICONAZOLE
     Indication: PROPHYLAXIS
     Route: 048
     Dates: start: 20160324, end: 20160328
  4. METOPROLOL. [Concomitant]
     Active Substance: METOPROLOL
  5. TACROLIMUS. [Concomitant]
     Active Substance: TACROLIMUS
  6. PREDNISONE. [Concomitant]
     Active Substance: PREDNISONE
  7. VALACYCLOVIR [Concomitant]
     Active Substance: VALACYCLOVIR HYDROCHLORIDE
  8. MEROPENEM. [Concomitant]
     Active Substance: MEROPENEM

REACTIONS (6)
  - Pyrexia [None]
  - Blood alkaline phosphatase increased [None]
  - Antiviral drug level below therapeutic [None]
  - Aspartate aminotransferase increased [None]
  - Alanine aminotransferase increased [None]
  - Therapy change [None]

NARRATIVE: CASE EVENT DATE: 20160328
